FAERS Safety Report 5934595-3 (Version None)
Quarter: 2008Q4

REPORT INFORMATION
  Report Type: 
  Country: None (occurrence: None)
  Receive Date: 20081029
  Receipt Date: 20081024
  Transmission Date: 20090506
  Serious: Yes (Hospitalization, Disabling)
  Sender: FDA-Public Use
  Company Number: NO-ASTRAZENECA-2008SE04986

PATIENT
  Age: 68 Year
  Sex: Female

DRUGS (4)
  1. ENTOCORT EC [Interacting]
     Route: 048
  2. HUMIRA [Suspect]
     Indication: CROHN'S DISEASE
     Dosage: INITIATION OF TREATMENT
     Dates: start: 20080919
  3. SOLU-CORTEF [Interacting]
     Dates: start: 20080914, end: 20080928
  4. PREDNISOLONE [Interacting]

REACTIONS (2)
  - INTRASPINAL ABSCESS [None]
  - SEPSIS [None]
